FAERS Safety Report 7091151-4 (Version None)
Quarter: 2010Q4

REPORT INFORMATION
  Report Type: 
  Country: None (occurrence: None)
  Receive Date: 20101109
  Receipt Date: 20101027
  Transmission Date: 20110411
  Serious: Yes (Life-Threatening, Hospitalization, Other)
  Sender: FDA-Public Use
  Company Number: CZ-ROCHE-725359

PATIENT
  Sex: Male

DRUGS (5)
  1. ROACTEMRA [Suspect]
     Indication: RHEUMATOID ARTHRITIS
     Dosage: FORM: INFUSION
     Route: 042
     Dates: start: 20100224, end: 20100617
  2. METHOTREXATE [Concomitant]
     Route: 048
  3. ACIDUM FOLICUM [Concomitant]
     Route: 048
  4. MIRIL [Concomitant]
     Dosage: 1-0-1/2
  5. AULIN [Concomitant]

REACTIONS (12)
  - ARTHRITIS BACTERIAL [None]
  - DECUBITUS ULCER [None]
  - DEPRESSED LEVEL OF CONSCIOUSNESS [None]
  - DISSEMINATED INTRAVASCULAR COAGULATION [None]
  - EPIDIDYMITIS [None]
  - HEADACHE [None]
  - HYPERGLYCAEMIA [None]
  - MULTI-ORGAN FAILURE [None]
  - NERVE BLOCK [None]
  - PERICARDIAL EFFUSION [None]
  - PULMONARY EMBOLISM [None]
  - SEPSIS [None]
